FAERS Safety Report 4289311-0 (Version None)
Quarter: 2004Q1

REPORT INFORMATION
  Report Type: 
  Country: None (occurrence: None)
  Receive Date: 20040206
  Receipt Date: 20040128
  Transmission Date: 20041129
  Serious: Yes (Hospitalization)
  Sender: FDA-Public Use
  Company Number: 2004196654JP

PATIENT
  Age: 15 Year
  Sex: Female

DRUGS (5)
  1. ETOPOSIDE [Suspect]
     Indication: LYMPHOMA
  2. CICLOFOSFAMIDA (CYCLOPHOSPHAMIDE)POWDER, STERILE [Concomitant]
     Indication: LYMPHOMA
  3. METHOTREXATE [Suspect]
     Indication: LYMPHOMA
  4. DOXORUBICIN HCL [Suspect]
     Indication: LYMPHOMA
  5. CYTOSAR-U [Suspect]
     Indication: LYMPHOMA

REACTIONS (9)
  - ANAPHYLACTIC REACTION [None]
  - BACK PAIN [None]
  - BONE SARCOMA [None]
  - CARDIAC FAILURE [None]
  - CARDIOTOXICITY [None]
  - HEPATOCELLULAR DAMAGE [None]
  - NEPHROPATHY [None]
  - PULMONARY OEDEMA [None]
  - SWELLING [None]
